FAERS Safety Report 16979201 (Version 2)
Quarter: 2020Q1

REPORT INFORMATION
  Report Type: Spontaneous
  Country: US (occurrence: US)
  Receive Date: 20191031
  Receipt Date: 20200317
  Transmission Date: 20200409
  Serious: No
  Sender: FDA-Public Use
  Company Number: US-PFIZER INC-2019468165

PATIENT
  Age: 70 Year
  Sex: Female

DRUGS (1)
  1. RETACRIT [Suspect]
     Active Substance: EPOETIN ALFA-EPBX
     Indication: END STAGE RENAL DISEASE
     Dosage: 40000 IU, UNK (Q 4 WEEK)

REACTIONS (1)
  - Renal disorder [Unknown]
